FAERS Safety Report 4938716-0 (Version None)
Quarter: 2006Q1

REPORT INFORMATION
  Report Type: 
  Country: None (occurrence: None)
  Receive Date: 20060127
  Receipt Date: 20051104
  Transmission Date: 20060701
  Serious: Yes (Other)
  Sender: FDA-Public Use
  Company Number: 2005151777

PATIENT
  Age: 83 Year
  Sex: Male
  Weight: 61.2356 kg

DRUGS (3)
  1. LYRICA [Suspect]
     Indication: NEUROPATHY
     Dosage: 150 MG (50 MG, 3 IN 1 D)
     Dates: start: 20051103, end: 20051103
  2. TRILEPTAL [Concomitant]
  3. ANTIHYPERTENSIVES (ANTIHYPERTENSIVES) [Concomitant]

REACTIONS (2)
  - DIFFICULTY IN WALKING [None]
  - DIZZINESS [None]
